FAERS Safety Report 6077331-5 (Version None)
Quarter: 2009Q1

REPORT INFORMATION
  Report Type: 
  Country: None (occurrence: None)
  Receive Date: 20090213
  Receipt Date: 20090205
  Transmission Date: 20090719
  Serious: Yes (Life-Threatening)
  Sender: FDA-Public Use
  Company Number: B0557733A

PATIENT
  Age: 47 Year
  Sex: Male

DRUGS (7)
  1. ARIXTRA [Suspect]
     Dosage: 2.5MG PER DAY
     Route: 058
     Dates: start: 20081213, end: 20081225
  2. SKENAN [Concomitant]
     Route: 065
  3. LYRICA [Concomitant]
     Route: 065
  4. RIVOTRIL [Concomitant]
     Route: 065
  5. NEO-MERCAZOLE TAB [Concomitant]
     Route: 065
  6. MUCOMYST [Concomitant]
     Route: 065
  7. CATAPRESSAN [Concomitant]
     Route: 065

REACTIONS (2)
  - MUSCLE HAEMORRHAGE [None]
  - SHOCK HAEMORRHAGIC [None]
